FAERS Safety Report 10172943 (Version 1)
Quarter: 2014Q2

REPORT INFORMATION
  Report Type: Spontaneous
  Country: US (occurrence: None)
  Receive Date: 20140514
  Receipt Date: 20140514
  Transmission Date: 20141212
  Serious: Yes (Life-Threatening, Hospitalization, Disabling)
  Sender: FDA-Public Use
  Company Number: None

PATIENT
  Age: 61 Year
  Sex: Male
  Weight: 88.45 kg

DRUGS (2)
  1. BENDAMUSTINE [Suspect]
     Indication: CHRONIC LYMPHOCYTIC LEUKAEMIA
     Route: 042
     Dates: start: 20140324, end: 20140325
  2. RITUXIN [Suspect]

REACTIONS (8)
  - Tumour lysis syndrome [None]
  - Hypotension [None]
  - Diarrhoea [None]
  - Fall [None]
  - Gait disturbance [None]
  - Herpes simplex [None]
  - Encephalitis viral [None]
  - Oral herpes [None]
